FAERS Safety Report 20812163 (Version 1)
Quarter: 2022Q2

REPORT INFORMATION
  Report Type: Spontaneous
  Country: FR (occurrence: None)
  Receive Date: 20220511
  Receipt Date: 20220511
  Transmission Date: 20220721
  Serious: Yes (Hospitalization)
  Sender: FDA-Public Use
  Company Number: FR-ROCHE-3093339

PATIENT
  Age: 76 Year
  Sex: Female
  Weight: 70 kg

DRUGS (10)
  1. CLONAZEPAM [Suspect]
     Active Substance: CLONAZEPAM
     Indication: Anaesthesia procedure
     Route: 042
     Dates: start: 20210317, end: 20210317
  2. PROPOFOL [Suspect]
     Active Substance: PROPOFOL
     Indication: Anaesthesia procedure
     Route: 042
     Dates: start: 20210317, end: 20210317
  3. CEFAZOLIN SODIUM [Suspect]
     Active Substance: CEFAZOLIN SODIUM
     Indication: Anaesthesia procedure
     Route: 042
     Dates: start: 20210317, end: 20210317
  4. CLOBAZAM [Suspect]
     Active Substance: CLOBAZAM
     Indication: Epilepsy
     Dosage: IN THE EVENING
     Route: 048
     Dates: start: 20210322, end: 20210326
  5. TRAMADOL HYDROCHLORIDE [Suspect]
     Active Substance: TRAMADOL HYDROCHLORIDE
     Indication: Anaesthesia procedure
     Route: 042
     Dates: start: 20210317, end: 20210317
  6. PREDNISOLONE SODIUM METAZOATE [Concomitant]
     Active Substance: PREDNISOLONE SODIUM METAZOATE
  7. LOVENOX [Concomitant]
     Active Substance: ENOXAPARIN SODIUM
  8. VIMPAT [Concomitant]
     Active Substance: LACOSAMIDE
  9. ESOMEPRAZOLE [Concomitant]
     Active Substance: ESOMEPRAZOLE
  10. DAFALGAN [Concomitant]
     Active Substance: ACETAMINOPHEN

REACTIONS (1)
  - Hepatic cytolysis [Recovering/Resolving]

NARRATIVE: CASE EVENT DATE: 20210325
